FAERS Safety Report 14180137 (Version 5)
Quarter: 2018Q2

REPORT INFORMATION
  Report Type: Spontaneous
  Country: US (occurrence: US)
  Receive Date: 20171110
  Receipt Date: 20180426
  Transmission Date: 20180711
  Serious: Yes (Other)
  Sender: FDA-Public Use
  Company Number: US-PFIZER INC-2017478885

PATIENT
  Age: 43 Year
  Sex: Female

DRUGS (2)
  1. LEVOFLOXACIN. [Suspect]
     Active Substance: LEVOFLOXACIN
     Indication: EAR INFECTION
     Dosage: 500 MG, 2X/DAY(12DAY COURSE)
     Route: 048
  2. LOVENOX [Concomitant]
     Active Substance: ENOXAPARIN SODIUM
     Indication: DEEP VEIN THROMBOSIS
     Dosage: UNK

REACTIONS (2)
  - Complex regional pain syndrome [Recovered/Resolved]
  - Neurotoxicity [Unknown]
